FAERS Safety Report 16286419 (Version 1)
Quarter: 2019Q2

REPORT INFORMATION
  Report Type: Spontaneous
  Country: US (occurrence: US)
  Receive Date: 20190507
  Receipt Date: 20190507
  Transmission Date: 20190711
  Serious: Yes (Disabling)
  Sender: FDA-Public Use
  Company Number: None

PATIENT
  Age: 53 Year
  Sex: Female
  Weight: 50.85 kg

DRUGS (6)
  1. IRON [Concomitant]
     Active Substance: IRON
  2. CITRUS PECTIN POWDER [Concomitant]
  3. ALLER-C [Concomitant]
  4. FASLODEX [Suspect]
     Active Substance: FULVESTRANT
     Indication: BREAST CANCER
     Dosage: ?          QUANTITY:2 INJECTION(S);OTHER FREQUENCY:EVERY MONTH;?
     Route: 030
     Dates: start: 20181220
  5. VITAMIN B12 [Concomitant]
     Active Substance: CYANOCOBALAMIN
  6. MAGNESIUM OXIDE. [Concomitant]
     Active Substance: MAGNESIUM OXIDE

REACTIONS (1)
  - Myositis [None]

NARRATIVE: CASE EVENT DATE: 20190419
